FAERS Safety Report 4411863-8 (Version None)
Quarter: 2004Q3

REPORT INFORMATION
  Report Type: 
  Country: None (occurrence: None)
  Receive Date: 20040730
  Receipt Date: 20040330
  Transmission Date: 20050211
  Serious: No
  Sender: FDA-Public Use
  Company Number: US-GLAXOSMITHKLINE-A0505108A

PATIENT
  Age: 15 Day
  Sex: Female

DRUGS (3)
  1. ZANTAC [Suspect]
     Indication: PROPHYLAXIS
     Dosage: 2MGK CONTINUOUS
     Route: 042
     Dates: start: 20040325, end: 20040329
  2. PHENOBARBITAL TAB [Concomitant]
     Dates: start: 20040328
  3. ATIVAN [Concomitant]

REACTIONS (1)
  - ALOPECIA [None]
